FAERS Safety Report 6220152-0 (Version None)
Quarter: 2009Q2

REPORT INFORMATION
  Report Type: 
  Country: None (occurrence: None)
  Receive Date: 20090609
  Receipt Date: 20090508
  Transmission Date: 20091009
  Serious: Yes (Other)
  Sender: FDA-Public Use
  Company Number: US-JNJCH-2009009106

PATIENT
  Age: 8 Year
  Weight: 22.7 kg

DRUGS (1)
  1. CHILDREN'S BENADRYL ALLERGY CHERRY LIQUID [Suspect]
     Indication: HYPERSENSITIVITY
     Dosage: TEXT:1-2 TEASPOONFULS 4 TIMES A YEAR
     Route: 048

REACTIONS (1)
  - PRODUCT CONTAMINATION [None]
